FAERS Safety Report 8874670 (Version 2)
Quarter: 2013Q1

REPORT INFORMATION
  Report Type: Spontaneous
  Country: TH (occurrence: TH)
  Receive Date: 20121030
  Receipt Date: 20130131
  Transmission Date: 20140127
  Serious: Yes (Other)
  Sender: FDA-Public Use
  Company Number: TH-ROCHE-1130643

PATIENT
  Sex: Male

DRUGS (11)
  1. RECORMON [Suspect]
     Indication: NEPHROGENIC ANAEMIA
     Route: 058
     Dates: start: 20061221
  2. RECORMON [Suspect]
     Route: 058
     Dates: start: 20071129
  3. RECORMON [Suspect]
     Route: 058
     Dates: start: 20080710
  4. RECORMON [Suspect]
     Route: 058
     Dates: start: 20081127, end: 20090625
  5. RECORMON [Suspect]
     Route: 058
     Dates: start: 20091207
  6. RECORMON [Suspect]
     Route: 058
     Dates: start: 20100826
  7. RECORMON [Suspect]
     Route: 058
     Dates: start: 20100930
  8. RECORMON [Suspect]
     Route: 058
     Dates: start: 20101202
  9. MIRCERA [Suspect]
     Indication: NEPHROGENIC ANAEMIA
     Route: 058
     Dates: start: 20090625
  10. MIRCERA [Suspect]
     Route: 058
     Dates: start: 20090820
  11. MIRCERA [Suspect]
     Route: 058
     Dates: start: 20091022, end: 20091207

REACTIONS (1)
  - Renal failure chronic [Recovering/Resolving]
